FAERS Safety Report 6935964-5 (Version None)
Quarter: 2010Q3

REPORT INFORMATION
  Report Type: 
  Country: None (occurrence: None)
  Receive Date: 20100823
  Receipt Date: 20100811
  Transmission Date: 20110219
  Serious: Yes (Hospitalization, Other)
  Sender: FDA-Public Use
  Company Number: US-ELI_LILLY_AND_COMPANY-US200806004276

PATIENT
  Sex: Female
  Weight: 85.261 kg

DRUGS (7)
  1. BYETTA [Suspect]
     Indication: TYPE 2 DIABETES MELLITUS
     Dosage: 5 UG, 2/D
     Route: 058
     Dates: start: 20060420, end: 20060501
  2. BYETTA [Suspect]
     Dosage: 10 UG, 2/D
     Route: 058
     Dates: start: 20060501
  3. METFORMIN [Concomitant]
     Indication: TYPE 2 DIABETES MELLITUS
     Dosage: 500 MG, EACH MORNING
     Route: 048
  4. GLYBURIDE AND METFORMIN HCL [Concomitant]
     Indication: TYPE 2 DIABETES MELLITUS
     Dosage: UNK, 2/D
     Route: 048
  5. HUMULIN R [Concomitant]
     Indication: TYPE 2 DIABETES MELLITUS
     Route: 058
  6. HUMALOG [Concomitant]
     Dosage: 17 U, EACH EVENING
     Route: 058
  7. SYMLIN [Concomitant]
     Indication: TYPE 2 DIABETES MELLITUS
     Dosage: 60 UG, 2/D
     Route: 058
     Dates: start: 20080611

REACTIONS (11)
  - ABDOMINAL PAIN [None]
  - BLOOD GLUCOSE INCREASED [None]
  - CHILLS [None]
  - COLITIS [None]
  - DIARRHOEA [None]
  - DRUG INEFFECTIVE [None]
  - MALAISE [None]
  - MUSCLE SPASMS [None]
  - NASAL CONGESTION [None]
  - OVARIAN ENLARGEMENT [None]
  - RENAL FAILURE [None]
